FAERS Safety Report 9589735 (Version 1)
Quarter: 2013Q4

REPORT INFORMATION
  Report Type: Spontaneous
  Country: US (occurrence: US)
  Receive Date: 20131003
  Receipt Date: 20131003
  Transmission Date: 20140711
  Serious: No
  Sender: FDA-Public Use
  Company Number: US-AMGEN-USASP2012071707

PATIENT
  Sex: Female
  Weight: 72.56 kg

DRUGS (6)
  1. ENBREL [Suspect]
     Indication: RHEUMATOID ARTHRITIS
     Dosage: 50 MG, UNK
  2. SYNTHROID [Concomitant]
     Dosage: UNK
  3. RHINOCORT                          /00212602/ [Concomitant]
     Dosage: UNK
  4. MULTIVITAMIN                       /00097801/ [Concomitant]
     Dosage: UNK
  5. LEFLUNOMIDE [Concomitant]
     Dosage: UNK
  6. FOLIC ACID [Concomitant]

REACTIONS (2)
  - Tinea infection [Unknown]
  - Injection site pain [Unknown]
